FAERS Safety Report 18073352 (Version 1)
Quarter: 2020Q3

REPORT INFORMATION
  Report Type: Spontaneous
  Country: CA (occurrence: CA)
  Receive Date: 20200727
  Receipt Date: 20200727
  Transmission Date: 20201103
  Serious: Yes (Hospitalization)
  Sender: FDA-Public Use
  Company Number: CA-MYLANLABS-2020M1066966

PATIENT
  Age: 11 Year
  Sex: Male

DRUGS (27)
  1. MONTELUKAST [Suspect]
     Active Substance: MONTELUKAST SODIUM
     Indication: CHILD ABUSE
     Dosage: 10 MILLIGRAM, QD
     Route: 048
  2. CLOBAZAM. [Suspect]
     Active Substance: CLOBAZAM
     Indication: CHILD ABUSE
     Dosage: 20 MILLIGRAM, BID
     Route: 048
  3. KETOROLAC [Suspect]
     Active Substance: KETOROLAC TROMETHAMINE
     Indication: CHILD ABUSE
     Dosage: 20 MILLIGRAM, Q6H ADMINISTERED EVERY 6 HOURS AS REQUIRED
     Route: 048
  4. PHENOBARBITAL. [Suspect]
     Active Substance: PHENOBARBITAL
     Indication: CHILD ABUSE
     Dosage: 30 MILLIGRAM, BID
     Route: 048
  5. PANTOPRAZOLE [Suspect]
     Active Substance: PANTOPRAZOLE
     Indication: CHILD ABUSE
     Dosage: 40 MILLIGRAM, QD
     Route: 048
  6. ARIPIPRAZOLE. [Suspect]
     Active Substance: ARIPIPRAZOLE
     Indication: CHILD ABUSE
     Dosage: 2 MILLIGRAM, TID ADMINISTERED THREE TIMES DAILY
     Route: 048
  7. ASCORBIC ACID. [Suspect]
     Active Substance: ASCORBIC ACID
     Indication: CHILD ABUSE
     Dosage: 1500 MILLIGRAM, QD
     Route: 048
  8. RANITIDINE. [Suspect]
     Active Substance: RANITIDINE
     Indication: CHILD ABUSE
     Dosage: 150 MILLIGRAM, QD
     Route: 048
  9. CELECOXIB. [Suspect]
     Active Substance: CELECOXIB
     Indication: CHILD ABUSE
     Dosage: 100 MILLIGRAM, BID
     Route: 048
     Dates: start: 2016
  10. BACLOFEN. [Suspect]
     Active Substance: BACLOFEN
     Indication: CHILD ABUSE
     Dosage: 20 MILLIGRAM, TID ADMINISTERED THREE TIMES DAILY
     Route: 048
  11. DIPHENHYDRAMINE. [Suspect]
     Active Substance: DIPHENHYDRAMINE
     Indication: CHILD ABUSE
     Dosage: 12.5 MILLIGRAM, Q6H ADMINISTERED EVERY 6 HOURS AS REQUIRED
     Route: 048
  12. FLUOXETINE [Suspect]
     Active Substance: FLUOXETINE HYDROCHLORIDE
     Indication: CHILD ABUSE
     Dosage: 20 MILLIGRAM, QD
     Route: 048
  13. HYDROXYCHLOROQUINE [Suspect]
     Active Substance: HYDROXYCHLOROQUINE
     Indication: CHILD ABUSE
     Dosage: 400 MILLIGRAM, QD
     Route: 048
  14. CLONIDINE. [Suspect]
     Active Substance: CLONIDINE
     Indication: CHILD ABUSE
     Dosage: DOSE: 0.05MG EVERY MORNING AND 0.1 MG EVERY EVENING
     Route: 048
  15. DIMENHYDRINATE. [Suspect]
     Active Substance: DIMENHYDRINATE
     Indication: CHILD ABUSE
     Dosage: 25 MILLIGRAM, QD ADMINISTERED DAILY AS REQUIRED
     Route: 048
  16. HYDROMORPHONE [Suspect]
     Active Substance: HYDROMORPHONE
     Indication: CHILD ABUSE
     Dosage: IMMEDIATE RELEASE
     Route: 065
     Dates: start: 2016
  17. GABAPENTIN. [Suspect]
     Active Substance: GABAPENTIN
     Indication: CHILD ABUSE
     Dosage: 600 MILLIGRAM, TID ADMINISTERED THREE TIMES DAILY
     Route: 048
     Dates: start: 2016
  18. LEUPRORELIN [Suspect]
     Active Substance: LEUPROLIDE ACETATE
     Indication: CHILD ABUSE
     Dosage: 7.5 MILLIGRAM EVERY 30 DAYS
     Route: 030
  19. LORAZEPAM. [Suspect]
     Active Substance: LORAZEPAM
     Indication: CHILD ABUSE
     Dosage: DOSE: 0.5MG AND 2MG, AS REQUIRED
     Route: 060
     Dates: start: 2016
  20. METHOCARBAMOL W/PARACETAMOL [Suspect]
     Active Substance: ACETAMINOPHEN\METHOCARBAMOL
     Indication: CHILD ABUSE
     Dosage: UNK, BID
     Route: 048
     Dates: start: 2016
  21. MELATONIN [Suspect]
     Active Substance: MELATONIN
     Indication: CHILD ABUSE
     Dosage: 10 MILLIGRAM, QD ADMINISTERED EVERY NIGHT
     Route: 048
  22. BISACODYL. [Suspect]
     Active Substance: BISACODYL
     Indication: CHILD ABUSE
     Dosage: 5 MILLIGRAM, QD ADMINISTERED DAILY AS REQUIRED
     Route: 048
  23. POLYETHYLENE GLYCOL [Suspect]
     Active Substance: POLYETHYLENE GLYCOLS
     Indication: CHILD ABUSE
     Dosage: 30 MILLIGRAM, BID
     Route: 048
  24. COLECALCIFEROL [Suspect]
     Active Substance: CHOLECALCIFEROL
     Indication: CHILD ABUSE
     Dosage: 2000 INTERNATIONAL UNIT, QD
     Route: 048
  25. METHADONE [Suspect]
     Active Substance: METHADONE HYDROCHLORIDE
     Indication: CHILD ABUSE
     Dosage: 2 MILLIGRAM, TID ADMINISTERED THREE TIMES DAILY
     Route: 048
     Dates: start: 2016
  26. SALBUTAMOL SULFATE [Suspect]
     Active Substance: ALBUTEROL SULFATE
     Indication: CHILD ABUSE
     Dosage: 2 DOSAGE FORM, Q4H 100MICROG PER ACTUATION; 2 PUFFS EVERY 4 HOURS AS REQUIRED
     Route: 055
  27. FLUTICASONE. [Suspect]
     Active Substance: FLUTICASONE
     Indication: CHILD ABUSE
     Dosage: 2 DOSAGE FORM, QD DOSE: 250MICROG PER ACTUATION; 2 PUFFS DAILY
     Route: 055

REACTIONS (1)
  - Victim of child abuse [Recovered/Resolved]
